FAERS Safety Report 6026563-0 (Version None)
Quarter: 2009Q1

REPORT INFORMATION
  Report Type: 
  Country: None (occurrence: None)
  Receive Date: 20090102
  Receipt Date: 20081223
  Transmission Date: 20090719
  Serious: Yes (Life-Threatening, Hospitalization)
  Sender: FDA-Public Use
  Company Number: GR-ABBOTT-08P-066-0494948-00

PATIENT
  Age: 57 Year
  Sex: Male

DRUGS (7)
  1. WARFARIN [Suspect]
     Indication: ATRIAL FIBRILLATION
     Dosage: NOT REPORTED
  2. WARFARIN [Suspect]
     Dosage: NOT REPORTED
  3. DIPYRIDAMOLE [Suspect]
     Indication: TRANSIENT ISCHAEMIC ATTACK
  4. HEPARIN [Suspect]
     Indication: TRANSIENT ISCHAEMIC ATTACK
     Dosage: 20,000IE/24 HOURS
     Route: 042
  5. ASPIRIN [Suspect]
     Indication: TRANSIENT ISCHAEMIC ATTACK
  6. METOPROLOL [Concomitant]
     Indication: DRUG USE FOR UNKNOWN INDICATION
     Route: 048
  7. MANNITOL [Concomitant]
     Indication: DRUG USE FOR UNKNOWN INDICATION
     Dosage: 20% SOLUTION 1GR/KG

REACTIONS (9)
  - ABDOMINAL PAIN LOWER [None]
  - BACK PAIN [None]
  - FLUID OVERLOAD [None]
  - HAEMATOCRIT DECREASED [None]
  - HAEMOGLOBIN DECREASED [None]
  - MONOPARESIS [None]
  - NAUSEA [None]
  - NEUROPATHY PERIPHERAL [None]
  - RETROPERITONEAL HAEMATOMA [None]
